FAERS Safety Report 16660343 (Version 1)
Quarter: 2019Q3

REPORT INFORMATION
  Report Type: Report from Study
  Country: IE (occurrence: IE)
  Receive Date: 20190802
  Receipt Date: 20190802
  Transmission Date: 20191004
  Serious: Yes (Hospitalization, Other)
  Sender: FDA-Public Use
  Company Number: IE-JNJFOC-20190737770

PATIENT
  Sex: Female

DRUGS (7)
  1. ESOMEPRAZOLE. [Concomitant]
     Active Substance: ESOMEPRAZOLE MAGNESIUM
     Route: 065
  2. IBRUTINIB [Suspect]
     Active Substance: IBRUTINIB
     Indication: CHRONIC LYMPHOCYTIC LEUKAEMIA
     Route: 048
     Dates: start: 20180616
  3. PARACETAMOL [Concomitant]
     Active Substance: ACETAMINOPHEN
     Route: 065
  4. ALLOPURINOL. [Concomitant]
     Active Substance: ALLOPURINOL
     Route: 065
  5. EZETIMIBE. [Concomitant]
     Active Substance: EZETIMIBE
     Route: 065
  6. CALCIUM CARBONATE;CALCIUM GLUCONATE/11796201/ [Concomitant]
     Route: 065
  7. PONSTAN [Concomitant]
     Active Substance: MEFENAMIC ACID
     Route: 065

REACTIONS (6)
  - Haematochezia [Unknown]
  - Off label use [Unknown]
  - Fatigue [Unknown]
  - Increased tendency to bruise [Unknown]
  - Incorrect dose administered [Unknown]
  - Infection [Unknown]
